FAERS Safety Report 23446071 (Version 5)
Quarter: 2024Q2

REPORT INFORMATION
  Report Type: Spontaneous
  Country: US (occurrence: US)
  Receive Date: 20240126
  Receipt Date: 20240621
  Transmission Date: 20240716
  Serious: Yes (Other)
  Sender: FDA-Public Use
  Company Number: US-BRISTOL-MYERS SQUIBB COMPANY-2024-012309

PATIENT
  Age: 72 Year
  Sex: Female

DRUGS (2)
  1. LENALIDOMIDE [Suspect]
     Active Substance: LENALIDOMIDE
     Indication: Monoclonal gammopathy
     Dosage: TAKE 1 CAPSULE BY MOUTH EVERY DAY
     Route: 048
     Dates: start: 20221205
  2. LENALIDOMIDE [Suspect]
     Active Substance: LENALIDOMIDE
     Dosage: TAKE 1 CAPSULE BY MOUTH EVERY DAY
     Route: 048
     Dates: start: 20240124

REACTIONS (11)
  - Off label use [Unknown]
  - Product dose omission issue [Recovered/Resolved]
  - Pigmentation disorder [Not Recovered/Not Resolved]
  - Product prescribing issue [Recovered/Resolved]
  - Therapy interrupted [Unknown]
  - Diarrhoea [Unknown]
  - Peripheral swelling [Unknown]
  - Bone pain [Unknown]
  - Fatigue [Unknown]
  - Constipation [Unknown]
  - Product dose omission in error [Unknown]
